FAERS Safety Report 5588326-X (Version None)
Quarter: 2008Q1

REPORT INFORMATION
  Report Type: 
  Country: None (occurrence: None)
  Receive Date: 20080108
  Receipt Date: 20071222
  Transmission Date: 20080703
  Serious: Yes (Other)
  Sender: FDA-Public Use
  Company Number: ACO_00418_2007

PATIENT

DRUGS (1)
  1. TERNELIN (TERNELIN - TIZANADINE HYDROCHLORIDE) [Suspect]
     Indication: DRUG USE FOR UNKNOWN INDICATION
     Dosage: (DF ORAL)

REACTIONS (1)
  - RHABDOMYOLYSIS [None]
